FAERS Safety Report 23511623 (Version 3)
Quarter: 2024Q2

REPORT INFORMATION
  Report Type: Spontaneous
  Country: JP (occurrence: JP)
  Receive Date: 20240212
  Receipt Date: 20240411
  Transmission Date: 20240716
  Serious: Yes (Death)
  Sender: FDA-Public Use
  Company Number: JP-TAIHOP-2024-000585

PATIENT
  Age: 75 Year
  Sex: Male
  Weight: 49.1 kg

DRUGS (7)
  1. FERRIC CITRATE ANHYDROUS [Suspect]
     Active Substance: FERRIC CITRATE ANHYDROUS
     Indication: Hyperphosphataemia
     Dosage: 3000 MILLIGRAM, Q8H
     Route: 048
     Dates: start: 20231016
  2. FUTIBATINIB [Suspect]
     Active Substance: FUTIBATINIB
     Indication: Oesophageal carcinoma
     Dosage: 20 MILLIGRAM, QD (CYCLE 1-5)
     Route: 048
     Dates: start: 20230922
  3. PEMBROLIZUMAB [Suspect]
     Active Substance: PEMBROLIZUMAB
     Indication: Oesophageal carcinoma
     Dosage: 200 MILLIGRAM, 3W (CYCLE 1-5)
     Route: 042
     Dates: start: 20230922, end: 20240110
  4. FLUOROURACIL [Suspect]
     Active Substance: FLUOROURACIL
     Indication: Oesophageal carcinoma
     Dosage: 1250 MILLIGRAM, 3W (CYCLE 1)
     Route: 042
     Dates: start: 20230922, end: 20230927
  5. FLUOROURACIL [Suspect]
     Active Substance: FLUOROURACIL
     Dosage: 939 MILLIGRAM, 3W (CYCLE 2-5)
     Route: 042
     Dates: start: 20231013, end: 20240115
  6. CISPLATIN [Suspect]
     Active Substance: CISPLATIN
     Indication: Oesophageal carcinoma
     Dosage: 125 MILLIGRAM, 3W (CYCLE 1)
     Route: 042
     Dates: start: 20230922, end: 20230922
  7. CISPLATIN [Suspect]
     Active Substance: CISPLATIN
     Dosage: 93.9 MILLIGRAM, 3W (CYCLE 2-5)
     Route: 042
     Dates: start: 20230922, end: 20240110

REACTIONS (1)
  - Pneumonia [Fatal]

NARRATIVE: CASE EVENT DATE: 20240120
